FAERS Safety Report 5340150-9 (Version None)
Quarter: 2007Q2

REPORT INFORMATION
  Report Type: 
  Country: None (occurrence: None)
  Receive Date: 20070525
  Receipt Date: 20070525
  Transmission Date: 20071010
  Serious: Yes (Other)
  Sender: FDA-Public Use
  Company Number: None

PATIENT
  Age: 54 Year
  Sex: Male
  Weight: 115.2136 kg

DRUGS (3)
  1. CELEBREX [Suspect]
     Indication: BACK PAIN
     Dosage: 200MG ONCE AT BREAKFAST PO
     Route: 048
     Dates: start: 20070516, end: 20070522
  2. METHADONE HCL [Suspect]
     Indication: DRUG ABUSER
     Dosage: 70MG 4 MORNING/3 AT BED PO
     Route: 048
     Dates: start: 19850915, end: 20070524
  3. METHADONE HCL [Suspect]
     Indication: PAIN
     Dosage: 70MG 4 MORNING/3 AT BED PO
     Route: 048
     Dates: start: 19850915, end: 20070524

REACTIONS (10)
  - ABASIA [None]
  - COORDINATION ABNORMAL [None]
  - DEPRESSED LEVEL OF CONSCIOUSNESS [None]
  - DRUG INTERACTION [None]
  - GAIT DISTURBANCE [None]
  - HYPERSOMNIA [None]
  - POSTURE ABNORMAL [None]
  - SCIATICA [None]
  - SENSATION OF HEAVINESS [None]
  - SOMNOLENCE [None]
